FAERS Safety Report 5941728-1 (Version None)
Quarter: 2008Q4

REPORT INFORMATION
  Report Type: 
  Country: None (occurrence: None)
  Receive Date: 20081105
  Receipt Date: 20081103
  Transmission Date: 20090506
  Serious: Yes (Other)
  Sender: FDA-Public Use
  Company Number: BR-BRISTOL-MYERS SQUIBB COMPANY-14392468

PATIENT
  Age: 42 Year
  Sex: Male

DRUGS (1)
  1. MITOMYCIN [Suspect]
     Dosage: 1 DOSAGE FORM = 0.3 MG/ML

REACTIONS (4)
  - POST PROCEDURAL COMPLICATION [None]
  - SCLERAL THINNING [None]
  - STAPHYLOMA [None]
  - UVEAL PROLAPSE [None]
